FAERS Safety Report 4494084-2 (Version None)
Quarter: 2004Q4

REPORT INFORMATION
  Report Type: 
  Country: None (occurrence: None)
  Receive Date: 20041105
  Receipt Date: 20041021
  Transmission Date: 20050328
  Serious: Yes (Hospitalization)
  Sender: FDA-Public Use
  Company Number: BR-MERCK-0410BRA00423

PATIENT
  Age: 29 Year
  Sex: Female

DRUGS (2)
  1. VIOXX [Suspect]
     Indication: VALVULOPLASTY CARDIAC
     Route: 048
     Dates: start: 20040924, end: 20040928
  2. PROPRANOLOL HYDROCHLORIDE [Concomitant]
     Indication: HYPERTENSION
     Route: 065

REACTIONS (1)
  - THROMBOSIS [None]
